FAERS Safety Report 9110235 (Version 2)
Quarter: 2013Q1

REPORT INFORMATION
  Report Type: Spontaneous
  Country: US (occurrence: US)
  Receive Date: 20130222
  Receipt Date: 20130227
  Transmission Date: 20140127
  Serious: Yes (Other)
  Sender: FDA-Public Use
  Company Number: US-JNJFOC-20130206820

PATIENT
  Sex: Male
  Weight: 70.31 kg

DRUGS (10)
  1. REMICADE [Suspect]
     Indication: CROHN^S DISEASE
     Route: 042
  2. POTASSIUM [Concomitant]
     Indication: BLOOD PRESSURE
     Route: 065
  3. NADOLOL [Concomitant]
     Indication: BLOOD PRESSURE
     Route: 065
  4. MORPHINE [Concomitant]
     Indication: PAIN
     Route: 065
  5. PREDNISONE [Concomitant]
     Indication: CROHN^S DISEASE
     Route: 065
  6. ALLOPURINOL [Concomitant]
     Indication: BLOOD URIC ACID DECREASED
     Route: 065
  7. LASIX [Concomitant]
     Indication: BLOOD PRESSURE
     Route: 065
  8. ZANTAC [Concomitant]
     Indication: GASTROOESOPHAGEAL REFLUX DISEASE
     Route: 065
  9. B 12 [Concomitant]
     Indication: GASTROINTESTINAL STOMA COMPLICATION
     Route: 065
  10. FOLIC ACID [Concomitant]
     Route: 065

REACTIONS (8)
  - Medical device complication [Not Recovered/Not Resolved]
  - Arthropathy [Not Recovered/Not Resolved]
  - Medical device complication [Not Recovered/Not Resolved]
  - Mass [Not Recovered/Not Resolved]
  - Blood chromium increased [Not Recovered/Not Resolved]
  - Upper limb fracture [Recovered/Resolved]
  - Device failure [Unknown]
  - Pain [Recovering/Resolving]
